FAERS Safety Report 20162023 (Version 1)
Quarter: 2021Q4

REPORT INFORMATION
  Report Type: Spontaneous
  Country: RU (occurrence: RU)
  Receive Date: 20211208
  Receipt Date: 20211208
  Transmission Date: 20220303
  Serious: Yes (Death, Other)
  Sender: FDA-Public Use
  Company Number: RU-SLATE RUN PHARMACEUTICALS-21RU000826

PATIENT

DRUGS (3)
  1. AZITHROMYCIN [Suspect]
     Active Substance: AZITHROMYCIN
     Indication: Maternal exposure during pregnancy
     Dosage: UNK
     Route: 015
  2. AMOXICILLIN\CLAVULANATE POTASSIUM [Suspect]
     Active Substance: AMOXICILLIN\CLAVULANATE POTASSIUM
     Indication: Maternal exposure during pregnancy
     Route: 015
  3. KALETRA [Suspect]
     Active Substance: LOPINAVIR\RITONAVIR
     Indication: Maternal exposure during pregnancy
     Route: 015

REACTIONS (7)
  - Asphyxia [Fatal]
  - Pneumonia aspiration [Fatal]
  - Lung disorder [Unknown]
  - Hyperplasia adrenal [Unknown]
  - Tissue infiltration [Unknown]
  - SARS-CoV-2 test positive [Unknown]
  - Foetal exposure during pregnancy [Unknown]

NARRATIVE: CASE EVENT DATE: 20200101
